FAERS Safety Report 12468705 (Version 1)
Quarter: 2016Q2

REPORT INFORMATION
  Report Type: Spontaneous
  Country: US (occurrence: US)
  Receive Date: 20160615
  Receipt Date: 20160615
  Transmission Date: 20160815
  Serious: Yes (Death, Other)
  Sender: FDA-Public Use
  Company Number: US-CONCORDIA PHARMACEUTICALS INC.-GSH201502-002322

PATIENT
  Age: 26 Year
  Sex: Male

DRUGS (16)
  1. GLUCAGON. [Suspect]
     Active Substance: GLUCAGON
     Indication: BRADYCARDIA
  2. NOREPINEPHRINE [Suspect]
     Active Substance: NOREPINEPHRINE\NOREPINEPHRINE BITARTRATE
  3. CALCIUM GLUCONATE. [Suspect]
     Active Substance: CALCIUM GLUCONATE
     Indication: HYPOTENSION
  4. GLUCAGON. [Suspect]
     Active Substance: GLUCAGON
     Indication: HYPOTENSION
  5. ADRENALINE [Suspect]
     Active Substance: EPINEPHRINE
     Indication: HYPOTENSION
     Dosage: 2-10 ?G/MIN
  6. DEXTROSE. [Suspect]
     Active Substance: DEXTROSE
  7. DOPAMINE [Suspect]
     Active Substance: DOPAMINE\DOPAMINE HYDROCHLORIDE
  8. VASOPRESSIN. [Suspect]
     Active Substance: VASOPRESSIN
     Dosage: 0.04 U/MIN X TOTAL 50 U
  9. SODIUM CHLORIDE. [Suspect]
     Active Substance: SODIUM CHLORIDE
     Indication: HYPOTENSION
     Route: 042
  10. SODIUM CHLORIDE. [Suspect]
     Active Substance: SODIUM CHLORIDE
     Indication: BRADYCARDIA
  11. ADRENALINE [Suspect]
     Active Substance: EPINEPHRINE
     Indication: BRADYCARDIA
  12. CALCIUM GLUCONATE. [Suspect]
     Active Substance: CALCIUM GLUCONATE
     Indication: BRADYCARDIA
  13. AMLODIPINE [Suspect]
     Active Substance: AMLODIPINE BESYLATE
     Indication: HYPERTENSION
  14. NOREPINEPHRINE [Suspect]
     Active Substance: NOREPINEPHRINE\NOREPINEPHRINE BITARTRATE
  15. METOPROLOL. [Suspect]
     Active Substance: METOPROLOL
     Indication: HYPERTENSION
  16. LISINOPRIL. [Suspect]
     Active Substance: LISINOPRIL
     Indication: HYPERTENSION

REACTIONS (7)
  - Acute respiratory failure [Unknown]
  - Drug ineffective [Unknown]
  - Hypotension [Not Recovered/Not Resolved]
  - Bradycardia [Not Recovered/Not Resolved]
  - Intentional overdose [Fatal]
  - Acute kidney injury [Unknown]
  - Death [Fatal]
